FAERS Safety Report 7311726-4 (Version None)
Quarter: 2011Q1

REPORT INFORMATION
  Report Type: 
  Country: None (occurrence: None)
  Receive Date: 20110215
  Receipt Date: 20110215
  Transmission Date: 20110831
  Serious: Yes (Death)
  Sender: FDA-Public Use
  Company Number: None

PATIENT
  Age: 76 Year
  Sex: Female
  Weight: 73.4827 kg

DRUGS (1)
  1. SEROQUEL [Suspect]
     Dosage: 25MG 2X DAILY AM + PM (STARTED SOMETIME AFTER NOV 17TH 2010)

REACTIONS (2)
  - MYOCARDIAL INFARCTION [None]
  - VOMITING [None]
